FAERS Safety Report 24378851 (Version 2)
Quarter: 2024Q4

REPORT INFORMATION
  Report Type: Spontaneous
  Country: CN (occurrence: CN)
  Receive Date: 20240930
  Receipt Date: 20241010
  Transmission Date: 20250114
  Serious: Yes (Hospitalization, Other)
  Sender: SANOFI AVENTIS
  Company Number: CN-SA-2024SA276118

PATIENT
  Age: 54 Year
  Sex: Male

DRUGS (7)
  1. ELOXATIN [Suspect]
     Active Substance: OXALIPLATIN
     Indication: Hepatocellular carcinoma
     Dosage: 100 MG/M2, OVER 2 H (DAY 1)
     Dates: start: 202112
  2. LEUCOVORIN CALCIUM [Suspect]
     Active Substance: LEUCOVORIN CALCIUM
     Indication: Hepatocellular carcinoma
     Dosage: 200 MG/M2, OVER 2 H (DAY 1)
     Dates: start: 202112, end: 202112
  3. LEUCOVORIN CALCIUM [Suspect]
     Active Substance: LEUCOVORIN CALCIUM
     Dosage: 200 MG/M2, OVER 2 H (DAY 2)
     Dates: start: 202112
  4. FLUOROURACIL [Suspect]
     Active Substance: FLUOROURACIL
     Indication: Hepatocellular carcinoma
     Dosage: 400 MG/M2, OVER 15 MIN (DAY 1)
     Dates: start: 202112, end: 202112
  5. FLUOROURACIL [Suspect]
     Active Substance: FLUOROURACIL
     Dosage: 600 MG/M2, OVER 22 H (DAY 1)
     Dates: start: 202112, end: 202112
  6. FLUOROURACIL [Suspect]
     Active Substance: FLUOROURACIL
     Dosage: 400 MG/M2, OVER 15 MIN (DAY 2)
     Dates: start: 202112
  7. FLUOROURACIL [Suspect]
     Active Substance: FLUOROURACIL
     Dosage: 600 MG/M2, OVER 22 H (DAY 2)
     Dates: start: 202112

REACTIONS (3)
  - Gastric ulcer [Recovered/Resolved with Sequelae]
  - Abdominal pain upper [Recovered/Resolved with Sequelae]
  - Gastrointestinal scarring [Unknown]

NARRATIVE: CASE EVENT DATE: 20211201
